FAERS Safety Report 15745584 (Version 1)
Quarter: 2018Q4

REPORT INFORMATION
  Report Type: Spontaneous
  Country: GB (occurrence: GB)
  Receive Date: 20181220
  Receipt Date: 20181220
  Transmission Date: 20190205
  Serious: Yes (Life-Threatening, Hospitalization, Other)
  Sender: FDA-Public Use
  Company Number: GB-BAYER-2018-237611

PATIENT
  Age: 61 Year
  Sex: Male
  Weight: 95 kg

DRUGS (6)
  1. MACROBID [CLARITHROMYCIN] [Suspect]
     Active Substance: CLARITHROMYCIN
     Indication: PROPHYLAXIS
     Dosage: 1 DF, UNK
     Route: 048
     Dates: start: 20150804
  2. FINASTERIDE. [Concomitant]
     Active Substance: FINASTERIDE
  3. CO-AMOXICLAV [AMOXICILLIN;CLAVULANATE POTASSIUM] [Concomitant]
     Active Substance: AMOXICILLIN\CLAVULANATE POTASSIUM
  4. TAMSULOSIN [Concomitant]
     Active Substance: TAMSULOSIN
  5. CIPROXIN [Suspect]
     Active Substance: CIPROFLOXACIN
     Indication: ORCHITIS
     Route: 048
     Dates: start: 20170427
  6. LANSOPRAZOLE. [Concomitant]
     Active Substance: LANSOPRAZOLE

REACTIONS (20)
  - Fall [Unknown]
  - Cold sweat [Unknown]
  - Nerve compression [Unknown]
  - Renal impairment [Unknown]
  - Cauda equina syndrome [Recovered/Resolved with Sequelae]
  - Jaundice [Unknown]
  - Back pain [Unknown]
  - Urinary incontinence [Unknown]
  - Neurological symptom [Unknown]
  - Asthenia [Unknown]
  - Muscular weakness [Unknown]
  - Urinary retention [Recovered/Resolved with Sequelae]
  - Arthralgia [Unknown]
  - Muscle spasms [Unknown]
  - Condition aggravated [Unknown]
  - Pain in extremity [Unknown]
  - Pain in extremity [Unknown]
  - Gait disturbance [Unknown]
  - Balance disorder [Unknown]
  - Gastrointestinal motility disorder [Unknown]

NARRATIVE: CASE EVENT DATE: 20150804
